FAERS Safety Report 26145257 (Version 1)
Quarter: 2025Q4

REPORT INFORMATION
  Report Type: Spontaneous
  Country: CH (occurrence: CH)
  Receive Date: 20251211
  Receipt Date: 20251211
  Transmission Date: 20260118
  Serious: Yes (Hospitalization, Other)
  Sender: BOEHRINGER INGELHEIM
  Company Number: None

PATIENT
  Age: 71 Year
  Sex: Male
  Weight: 99 kg

DRUGS (7)
  1. OFEV [Suspect]
     Active Substance: NINTEDANIB
     Indication: Pulmonary fibrosis
     Dates: end: 20251125
  2. XARELTO [Concomitant]
     Active Substance: RIVAROXABAN
     Indication: Deep vein thrombosis
     Dates: start: 20251114, end: 20251124
  3. ALENDRONATE [Concomitant]
     Active Substance: ALENDRONATE SODIUM
     Indication: Osteoporosis prophylaxis
     Dosage: LONG TERM TREATMENT, ONGOING.
  4. CANDESARTAN [Concomitant]
     Active Substance: CANDESARTAN
     Indication: Hypertension
     Dosage: LONG TERM TREATMENT, ONGOING.
  5. METFORMIN [Concomitant]
     Active Substance: METFORMIN HYDROCHLORIDE
     Indication: Type 2 diabetes mellitus
     Dosage: LONG TERM TREATMENT, ONGOING.
  6. PANTOZOL [Concomitant]
     Active Substance: PANTOPRAZOLE SODIUM
     Indication: Product used for unknown indication
     Dosage: LONG TERM TREATMENT, ONGOING.
  7. PREDNISONE [Concomitant]
     Active Substance: PREDNISONE
     Indication: Product used for unknown indication
     Dosage: LONG TERM TREATMENT, ONGOING.

REACTIONS (4)
  - Epistaxis [Recovered/Resolved]
  - Drug interaction [Recovered/Resolved]
  - Haematuria [Recovered/Resolved]
  - Haematoma muscle [Unknown]

NARRATIVE: CASE EVENT DATE: 20251101
